FAERS Safety Report 13382038 (Version 1)
Quarter: 2017Q1

REPORT INFORMATION
  Report Type: Spontaneous
  Country: US (occurrence: US)
  Receive Date: 20170329
  Receipt Date: 20170329
  Transmission Date: 20170429
  Serious: Yes (Hospitalization)
  Sender: FDA-Public Use
  Company Number: None

PATIENT
  Age: 80 Year
  Sex: Male
  Weight: 86.18 kg

DRUGS (1)
  1. CLINDAMYCIN. [Suspect]
     Active Substance: CLINDAMYCIN
     Indication: GINGIVITIS
     Route: 048
     Dates: start: 20170103, end: 20170104

REACTIONS (9)
  - Acute kidney injury [None]
  - Hypersensitivity [None]
  - Rash pruritic [None]
  - Swelling face [None]
  - Asthenia [None]
  - Body temperature increased [None]
  - Erythema [None]
  - Urinary retention [None]
  - Urticaria [None]

NARRATIVE: CASE EVENT DATE: 20170104
